FAERS Safety Report 17151221 (Version 5)
Quarter: 2020Q1

REPORT INFORMATION
  Report Type: Spontaneous
  Country: US (occurrence: US)
  Receive Date: 20191213
  Receipt Date: 20200104
  Transmission Date: 20200409
  Serious: Yes (Hospitalization, Other)
  Sender: FDA-Public Use
  Company Number: US-UNITED THERAPEUTICS-UNT-2019-020730

PATIENT
  Age: 63 Year
  Sex: Female
  Weight: 74.38 kg

DRUGS (2)
  1. TADALAFIL. [Concomitant]
     Active Substance: TADALAFIL
     Indication: PRODUCT USED FOR UNKNOWN INDICATION
     Dosage: UNK
     Route: 065
  2. REMODULIN [Suspect]
     Active Substance: TREPROSTINIL
     Indication: PULMONARY ARTERIAL HYPERTENSION
     Dosage: 0.065 ?G/KG, CONTINUING
     Route: 058
     Dates: start: 20180305

REACTIONS (15)
  - Nasopharyngitis [Unknown]
  - Respiratory tract congestion [Unknown]
  - Infusion site haemorrhage [Unknown]
  - Infusion site induration [Unknown]
  - Infusion site swelling [Unknown]
  - Viral infection [Unknown]
  - Extra dose administered [Unknown]
  - Nausea [Unknown]
  - Vertigo [Unknown]
  - Weight decreased [Unknown]
  - Cardiac fibrillation [Unknown]
  - Ear congestion [Unknown]
  - Decreased appetite [Unknown]
  - Dizziness [Unknown]
  - Infusion site erythema [Unknown]

NARRATIVE: CASE EVENT DATE: 2019
